FAERS Safety Report 6414365-2 (Version None)
Quarter: 2009Q4

REPORT INFORMATION
  Report Type: 
  Country: None (occurrence: None)
  Receive Date: 20091021
  Receipt Date: 20091013
  Transmission Date: 20100525
  Serious: Yes (Hospitalization)
  Sender: FDA-Public Use
  Company Number: 2009SP030320

PATIENT
  Age: 62 Year
  Sex: Female

DRUGS (5)
  1. MIRTAZAPINE [Suspect]
     Indication: DRUG USE FOR UNKNOWN INDICATION
     Dosage: PO
     Route: 048
     Dates: start: 20040101
  2. DEPAMIDE (VALPROMIDE) [Suspect]
     Indication: DRUG USE FOR UNKNOWN INDICATION
     Dosage: PO
     Route: 048
     Dates: start: 20040101, end: 20090924
  3. OXAZEPAM [Suspect]
     Indication: DRUG USE FOR UNKNOWN INDICATION
     Dosage: PO
     Route: 048
     Dates: start: 20040101
  4. NOCTRAN (NOCTRAN 10) [Suspect]
     Dosage: PO
     Route: 048
     Dates: start: 20040101
  5. DAFALGAN [Concomitant]

REACTIONS (3)
  - EOSINOPHILIA [None]
  - PERICARDITIS [None]
  - PLEURISY [None]
